FAERS Safety Report 10151037 (Version 1)
Quarter: 2014Q2

REPORT INFORMATION
  Report Type: Spontaneous
  Country: US (occurrence: US)
  Receive Date: 20140502
  Receipt Date: 20140502
  Transmission Date: 20141212
  Serious: Yes (Hospitalization)
  Sender: FDA-Public Use
  Company Number: US-BAYER-2014-063635

PATIENT
  Age: 41 Year
  Sex: Female
  Weight: 69.39 kg

DRUGS (3)
  1. YASMIN [Suspect]
     Indication: DYSMENORRHOEA
     Dosage: UNK
     Dates: start: 20040902, end: 20061127
  2. ZETIA [Concomitant]
     Dosage: 10 MG, UNK
  3. VYTORIN [Concomitant]

REACTIONS (1)
  - Deep vein thrombosis [None]
